FAERS Safety Report 4550278-9 (Version None)
Quarter: 2004Q4

REPORT INFORMATION
  Report Type: 
  Country: None (occurrence: None)
  Receive Date: 20041227
  Receipt Date: 20041111
  Transmission Date: 20050328
  Serious: No
  Sender: FDA-Public Use
  Company Number: 04P-163-0280301-00

PATIENT
  Age: 56 Year
  Sex: Female
  Weight: 127.0072 kg

DRUGS (7)
  1. HUMIRA [Suspect]
     Indication: RHEUMATOID ARTHRITIS
     Dosage: 40 MG, 1 IN 2 WK, SUBCUTANEOUS
     Route: 058
     Dates: start: 20041001
  2. BENACAR [Concomitant]
  3. SERETIDE MITE [Concomitant]
  4. SINGULAIR [Concomitant]
  5. ESOMEPRAZOLE [Concomitant]
  6. PREDNISONE [Concomitant]
  7. LEVOTHYROXINE [Concomitant]

REACTIONS (1)
  - INJECTION SITE HAEMORRHAGE [None]
